FAERS Safety Report 20627368 (Version 1)
Quarter: 2022Q1

REPORT INFORMATION
  Report Type: Spontaneous
  Country: PL (occurrence: None)
  Receive Date: 20220323
  Receipt Date: 20220323
  Transmission Date: 20220423
  Serious: Yes (Death, Life-Threatening, Other)
  Sender: FDA-Public Use
  Company Number: PL-POLPHARMA-128232

PATIENT
  Age: 14 Year
  Sex: Female
  Weight: 45 kg

DRUGS (4)
  1. POTASSIUM CHLORIDE [Suspect]
     Active Substance: POTASSIUM CHLORIDE
     Indication: Product used for unknown indication
     Dosage: UNK
     Route: 042
  2. CEFUROXIME SODIUM [Suspect]
     Active Substance: CEFUROXIME SODIUM
     Indication: Prophylaxis
     Dosage: BIOFUROKSYM 1,5 G PROSZEK DO SPORZADZANIA ROZTWORU DO WSTRZYKIWAN - BIOFUROKSYM (CEFUROXIME) 1,5 G P
     Route: 042
     Dates: start: 20180530, end: 20180530
  3. SODIUM CHLORIDE [Concomitant]
     Active Substance: SODIUM CHLORIDE
     Route: 042
     Dates: start: 20180530, end: 20180530
  4. WATER FOR INJECTION [Concomitant]
     Active Substance: WATER
     Route: 042
     Dates: start: 20180530, end: 20180530

REACTIONS (6)
  - Cardiac arrest [Fatal]
  - Pulmonary oedema [Fatal]
  - Feeling hot [Not Recovered/Not Resolved]
  - Headache [Not Recovered/Not Resolved]
  - Back pain [Not Recovered/Not Resolved]
  - Wrong product administered [Unknown]

NARRATIVE: CASE EVENT DATE: 20180530
